FAERS Safety Report 26077057 (Version 1)
Quarter: 2025Q4

REPORT INFORMATION
  Report Type: Spontaneous
  Country: IN (occurrence: IN)
  Receive Date: 20251121
  Receipt Date: 20251121
  Transmission Date: 20260118
  Serious: Yes (Other)
  Sender: GILEAD
  Company Number: IN-GILEAD-2025-0736528

PATIENT
  Age: 54 Year
  Sex: Female

DRUGS (1)
  1. TRODELVY [Suspect]
     Active Substance: SACITUZUMAB GOVITECAN-HZIY
     Indication: Non-small cell lung cancer
     Dosage: FIRST THREE CYCLES
     Route: 065

REACTIONS (2)
  - Disease progression [Unknown]
  - Product use in unapproved indication [Unknown]
